FAERS Safety Report 7364601-3 (Version None)
Quarter: 2011Q1

REPORT INFORMATION
  Report Type: 
  Country: None (occurrence: None)
  Receive Date: 20110321
  Receipt Date: 20110311
  Transmission Date: 20110831
  Serious: Yes (Death, Other)
  Sender: FDA-Public Use
  Company Number: CN-ROCHE-760919

PATIENT
  Sex: Female

DRUGS (9)
  1. OXALIPLATIN [Concomitant]
     Dosage: USED AS ONE DRUG OF FOL-FOX4 REGIMEN.
     Dates: start: 20100514, end: 20100514
  2. OXALIPLATIN [Concomitant]
     Dosage: USED AS ONE DRUG OF FOL-FOX4 REGIMEN.
     Dates: start: 20100528, end: 20100528
  3. WARFARIN SODIUM [Concomitant]
  4. CPT-11 [Concomitant]
     Dosage: TOTALLY USED FOE 2 TIMES.
     Dates: start: 20110108, end: 20110115
  5. AVASTIN [Suspect]
     Dosage: TOTALLY USED FOR 2 TIMES.
     Route: 041
     Dates: start: 20110108, end: 20110115
  6. XELODA [Suspect]
     Dosage: TOTALLY USED FOR 4 OR 5 COURSES.
     Route: 048
     Dates: start: 20100620, end: 20100801
  7. OXALIPLATIN [Concomitant]
     Dosage: TOALLY USED FOR 4 OR 5 COURSES AS ONE DRUG OF XELOX REGIMEN.
     Dates: start: 20100620, end: 20100801
  8. METOPROLOL SUCCINATE [Concomitant]
     Indication: BLOOD PRESSURE INCREASED
     Dates: start: 20110101
  9. PLENDIL [Concomitant]
     Indication: BLOOD PRESSURE INCREASED
     Dates: start: 20110101

REACTIONS (7)
  - METASTASES TO LIVER [None]
  - BLOOD UREA INCREASED [None]
  - BLOOD PRESSURE INCREASED [None]
  - HEPATIC ENCEPHALOPATHY [None]
  - PULMONARY OEDEMA [None]
  - RENAL FAILURE [None]
  - BLOOD CREATININE INCREASED [None]
